FAERS Safety Report 9897943 (Version 1)
Quarter: 2014Q1

REPORT INFORMATION
  Report Type: Spontaneous
  Country: US (occurrence: US)
  Receive Date: 20140214
  Receipt Date: 20140214
  Transmission Date: 20141002
  Serious: No
  Sender: FDA-Public Use
  Company Number: US-PFIZER INC-2014042455

PATIENT
  Age: 62 Year
  Sex: Female
  Weight: 88.44 kg

DRUGS (3)
  1. LYRICA [Suspect]
     Indication: DIABETIC NEUROPATHY
     Dosage: 50 MG, 2X/DAY
     Dates: start: 201204
  2. LYRICA [Suspect]
     Dosage: TITRATED TO 75MG 2X/DAY, THEN 150MG IN MORNING, 150MG IN THE EVENING AND 100 MG IN THE NIGHT
  3. PLAVIX [Concomitant]
     Indication: CARDIAC DISORDER
     Dosage: 75 MG, DAILY

REACTIONS (2)
  - Weight increased [Unknown]
  - Drug ineffective [Unknown]
